FAERS Safety Report 5077296-9 (Version None)
Quarter: 2006Q3

REPORT INFORMATION
  Report Type: 
  Country: None (occurrence: None)
  Receive Date: 20060810
  Receipt Date: 20060119
  Transmission Date: 20061208
  Serious: No
  Sender: FDA-Public Use
  Company Number: US-GLAXOSMITHKLINE-A0590061A

PATIENT
  Age: 43 Year
  Sex: Male

DRUGS (4)
  1. PAXIL [Suspect]
     Dosage: 20MG PER DAY
     Route: 048
  2. PAXIL [Suspect]
     Route: 048
  3. OXYCODONE HCL [Concomitant]
  4. VICODIN [Concomitant]

REACTIONS (6)
  - DIZZINESS [None]
  - DYSGEUSIA [None]
  - FEELING ABNORMAL [None]
  - NAUSEA [None]
  - VERTIGO [None]
  - VOMITING [None]
